FAERS Safety Report 21146492 (Version 1)
Quarter: 2022Q3

REPORT INFORMATION
  Report Type: Spontaneous
  Country: DE (occurrence: DE)
  Receive Date: 20220729
  Receipt Date: 20220729
  Transmission Date: 20221026
  Serious: No
  Sender: FDA-Public Use
  Company Number: None

PATIENT
  Age: 35 Year
  Sex: Female
  Weight: 65 kg

DRUGS (1)
  1. CEFUROXIME AXETIL [Suspect]
     Active Substance: CEFUROXIME AXETIL
     Indication: Borrelia infection
     Dosage: 2 DOSAGE FORM, OD
     Route: 048
     Dates: start: 20210930

REACTIONS (1)
  - Rash pruritic [Recovered/Resolved with Sequelae]

NARRATIVE: CASE EVENT DATE: 20211001
